FAERS Safety Report 21350891 (Version 1)
Quarter: 2022Q3

REPORT INFORMATION
  Report Type: Spontaneous
  Country: IL (occurrence: IL)
  Receive Date: 20220919
  Receipt Date: 20220919
  Transmission Date: 20221026
  Serious: Yes (Hospitalization, Other)
  Sender: FDA-Public Use
  Company Number: IL-JUBILANT CADISTA PHARMACEUTICALS-2022JUB00268

PATIENT
  Age: 75 Year
  Sex: Male

DRUGS (1)
  1. PREDNISONE [Suspect]
     Active Substance: PREDNISONE
     Indication: Prostate cancer
     Dosage: 5 MG, 1X/DAY, LOW DOSE
     Route: 065

REACTIONS (2)
  - Cerebral nocardiosis [Recovered/Resolved]
  - Brain abscess [Recovered/Resolved]
